FAERS Safety Report 15647525 (Version 2)
Quarter: 2018Q4

REPORT INFORMATION
  Report Type: Spontaneous
  Country: CA (occurrence: CA)
  Receive Date: 20181122
  Receipt Date: 20181122
  Transmission Date: 20190205
  Serious: Yes (Death)
  Sender: FDA-Public Use
  Company Number: CA-TEVA-2018-CA-979164

PATIENT
  Age: 36 Year
  Sex: Male

DRUGS (6)
  1. METFORMIN [Concomitant]
     Active Substance: METFORMIN HYDROCHLORIDE
  2. CLONAZEPAM. [Concomitant]
     Active Substance: CLONAZEPAM
  3. METHADONE [Concomitant]
     Active Substance: METHADONE HYDROCHLORIDE
  4. COCAINE [Suspect]
     Active Substance: COCAINE
  5. METHAMPHETAMINE [Suspect]
     Active Substance: METHAMPHETAMINE
  6. FENTANYL. [Suspect]
     Active Substance: FENTANYL
     Route: 065

REACTIONS (4)
  - Amphetamines positive [Fatal]
  - Opiates positive [Fatal]
  - Overdose [Fatal]
  - Postmortem blood drug level increased [Fatal]
